FAERS Safety Report 21104628 (Version 1)
Quarter: 2022Q3

REPORT INFORMATION
  Report Type: Spontaneous
  Country: FR (occurrence: FR)
  Receive Date: 20220720
  Receipt Date: 20220720
  Transmission Date: 20221027
  Serious: Yes (Other)
  Sender: FDA-Public Use
  Company Number: None

PATIENT
  Age: 36 Year
  Sex: Male

DRUGS (13)
  1. BUPRENORPHINE [Suspect]
     Active Substance: BUPRENORPHINE
     Dosage: NON RENSEIGN?E
     Route: 040
     Dates: start: 2004, end: 2005
  2. HEROIN [Suspect]
     Active Substance: DIAMORPHINE
     Dosage: NON RENSEIGN?E
     Route: 055
  3. HEROIN [Suspect]
     Active Substance: DIAMORPHINE
     Dosage: NON RENSEIGN?E
     Route: 040
     Dates: start: 2004
  4. HEROIN [Suspect]
     Active Substance: DIAMORPHINE
     Dosage: NON RENSEIGN?E
     Route: 045
     Dates: start: 2001
  5. BENZODIAZEPINE [Suspect]
     Active Substance: BENZODIAZEPINE
     Dosage: NON RENSEIGN?E
     Dates: start: 2003
  6. MIDOMAFETAMINE [Suspect]
     Active Substance: MIDOMAFETAMINE
     Dosage: NON RENSEIGN?E
  7. ALCOHOL [Suspect]
     Active Substance: ALCOHOL
     Dosage: JUSQU^? 45 U/J ACTUELLEMENT 10 ? 12U/J
     Route: 048
     Dates: start: 1997
  8. COCAINE [Suspect]
     Active Substance: COCAINE
     Dosage: NON RENSEIGN?E
     Route: 040
  9. COCAINE [Suspect]
     Active Substance: COCAINE
     Dosage: NON RENSEIGN?E
     Route: 045
  10. COCAINE [Suspect]
     Active Substance: COCAINE
     Dosage: NON RENSEIGN?E
     Route: 055
  11. LYSERGIDE [Suspect]
     Active Substance: LYSERGIDE
     Dosage: NON RENSEIGN?E
  12. NICOTINE\TOBACCO LEAF [Suspect]
     Active Substance: NICOTINE\TOBACCO LEAF
     Dosage: NON RENSEIGN?E
     Route: 055
  13. KETAMINE [Suspect]
     Active Substance: KETAMINE
     Dosage: NON RENSEIGN?E

REACTIONS (4)
  - Drug abuse [Not Recovered/Not Resolved]
  - General physical health deterioration [Not Recovered/Not Resolved]
  - Off label use [Not Recovered/Not Resolved]
  - Drug dependence [Not Recovered/Not Resolved]

NARRATIVE: CASE EVENT DATE: 20010101
